FAERS Safety Report 12178003 (Version 1)
Quarter: 2016Q1

REPORT INFORMATION
  Report Type: Spontaneous
  Country: BR (occurrence: BR)
  Receive Date: 20160314
  Receipt Date: 20160314
  Transmission Date: 20160526
  Serious: Yes (Other)
  Sender: FDA-Public Use
  Company Number: BR-PFIZER INC-2015466824

PATIENT
  Age: 69 Year
  Sex: Female

DRUGS (1)
  1. LIPITOR [Suspect]
     Active Substance: ATORVASTATIN CALCIUM
     Indication: BLOOD CHOLESTEROL INCREASED
     Dosage: 20 MG, PER DAY
     Route: 048
     Dates: start: 20151201, end: 20151222

REACTIONS (12)
  - Dysstasia [Unknown]
  - Diarrhoea [Unknown]
  - Faeces soft [Unknown]
  - Asthenia [Unknown]
  - Faeces discoloured [Unknown]
  - Decreased appetite [Unknown]
  - Pruritus [Unknown]
  - Pyrexia [Unknown]
  - Arthralgia [Unknown]
  - Abdominal pain [Unknown]
  - Urticaria [Unknown]
  - Feeling abnormal [Not Recovered/Not Resolved]

NARRATIVE: CASE EVENT DATE: 201512
